FAERS Safety Report 8415482-8 (Version None)
Quarter: 2012Q2

REPORT INFORMATION
  Report Type: 
  Country: None (occurrence: None)
  Receive Date: 20120606
  Receipt Date: 20120604
  Transmission Date: 20120825
  Serious: Yes (Death)
  Sender: FDA-Public Use
  Company Number: PHEH2012US010248

PATIENT
  Sex: Male

DRUGS (8)
  1. SENNA-MINT WAF [Suspect]
     Indication: ABNORMAL FAECES
     Dosage: 8.6 MG, 2-14 AS NEEDED
     Route: 048
  2. HYDROCODONE [Concomitant]
     Indication: PAIN
     Dosage: 7.25 MG, ONCE EVERY 4 HOURS
     Route: 048
  3. LEVOTHYROXINE SODIUM [Concomitant]
     Indication: THYROID DISORDER
     Dosage: 125 MG, UNK
  4. RAPAFLO [Concomitant]
     Indication: BENIGN PROSTATIC HYPERPLASIA
     Dosage: 8 MG, QD
  5. EXJADE [Suspect]
     Indication: RED BLOOD CELL ABNORMALITY
     Dosage: 500 MG, QD
     Route: 048
  6. OMEPRAZOLE [Concomitant]
     Indication: DYSPEPSIA
     Dosage: 20 MG, QD
     Route: 048
  7. BONIVA [Concomitant]
     Indication: BONE DISORDER
  8. DOCUSATE SODIUM [Concomitant]
     Indication: CONSTIPATION

REACTIONS (2)
  - HEPATIC CIRRHOSIS [None]
  - CHRONIC HEPATIC FAILURE [None]
